FAERS Safety Report 17582029 (Version 2)
Quarter: 2020Q4

REPORT INFORMATION
  Report Type: Spontaneous
  Country: US (occurrence: US)
  Receive Date: 20200325
  Receipt Date: 20201106
  Transmission Date: 20210113
  Serious: Yes (Other)
  Sender: FDA-Public Use
  Company Number: US-PFIZER INC-2020124387

PATIENT
  Age: 43 Year
  Sex: Female
  Weight: 82 kg

DRUGS (14)
  1. XELJANZ [Suspect]
     Active Substance: TOFACITINIB CITRATE
     Dosage: 10 MG, 1X/DAY
     Route: 048
  2. SYNTHROID [Concomitant]
     Active Substance: LEVOTHYROXINE SODIUM
     Dosage: 137 UG, UNK
     Route: 048
  3. FISH OIL [Concomitant]
     Active Substance: FISH OIL
     Dosage: 1000 MG, DAILY
     Route: 048
  4. CALCIUM 500+D [Concomitant]
     Active Substance: CALCIUM\VITAMIN D
     Dosage: 1 DF, DAILY
     Route: 048
  5. ZADITOR [Concomitant]
     Active Substance: KETOTIFEN FUMARATE
     Dosage: 1 DROP BOTH EYES, DAILY
     Route: 047
  6. L-METHYLFOLATE [Concomitant]
     Active Substance: LEVOMEFOLIC ACID
     Dosage: 1 MG, DAILY
     Route: 048
  7. LEVOTHYROXINE. [Concomitant]
     Active Substance: LEVOTHYROXINE
     Dosage: 137 UG, DAILY
     Route: 048
  8. FLUOXETINE [Concomitant]
     Active Substance: FLUOXETINE HYDROCHLORIDE
     Dosage: 10 MG, DAILY
     Route: 048
  9. ROPINIROLE. [Concomitant]
     Active Substance: ROPINIROLE
     Dosage: 0.25 MG, DAILY
     Route: 048
  10. XELJANZ XR [Suspect]
     Active Substance: TOFACITINIB CITRATE
     Dosage: 11 MG, 1X/DAY
     Route: 048
  11. VITAMINE B12 [Concomitant]
     Active Substance: CYANOCOBALAMIN
     Dosage: 1000 UG, DAILY
     Route: 048
  12. METHOTREXATE. [Concomitant]
     Active Substance: METHOTREXATE
     Dosage: 40 MG, WEEKLY (PER SUNDAY)
     Route: 030
  13. ZADITOR [Concomitant]
     Active Substance: KETOTIFEN FUMARATE
     Dosage: 1-2 DROPS, 2X/DAY
     Route: 047
  14. PREDNISONE. [Concomitant]
     Active Substance: PREDNISONE
     Dosage: 5 MG, DAILY
     Route: 048

REACTIONS (2)
  - Pulmonary embolism [Unknown]
  - Acute myocardial infarction [Unknown]

NARRATIVE: CASE EVENT DATE: 20180512
